FAERS Safety Report 23345994 (Version 2)
Quarter: 2024Q1

REPORT INFORMATION
  Report Type: Spontaneous
  Country: FR (occurrence: FR)
  Receive Date: 20231228
  Receipt Date: 20240131
  Transmission Date: 20240410
  Serious: Yes (Hospitalization, Other)
  Sender: FDA-Public Use
  Company Number: FR-009507513-2312FRA009109

PATIENT
  Age: 75 Year
  Sex: Female

DRUGS (1)
  1. PEMBROLIZUMAB [Suspect]
     Active Substance: PEMBROLIZUMAB
     Dosage: 1 DOSAGE FORM, EVERY 6 WEEKS
     Route: 042

REACTIONS (2)
  - Medical device site thrombosis [Recovered/Resolved]
  - Catheter site extravasation [Unknown]

NARRATIVE: CASE EVENT DATE: 20231221
